FAERS Safety Report 19630643 (Version 1)
Quarter: 2021Q3

REPORT INFORMATION
  Report Type: Spontaneous
  Country: CA (occurrence: CA)
  Receive Date: 20210729
  Receipt Date: 20210729
  Transmission Date: 20211014
  Serious: Yes (Hospitalization)
  Sender: FDA-Public Use
  Company Number: CA-ACCORD-233717

PATIENT
  Age: 82 Year
  Sex: Male

DRUGS (3)
  1. PREDNISONE. [Concomitant]
     Active Substance: PREDNISONE
     Indication: RASH
     Dosage: EVERY 1 DAYS
  2. METHOTREXATE. [Suspect]
     Active Substance: METHOTREXATE
     Indication: RHEUMATOID ARTHRITIS
     Dosage: 1 EVERY 1 WEEKS
     Route: 048
  3. PREDNISONE. [Concomitant]
     Active Substance: PREDNISONE
     Indication: RASH
     Dosage: EVERY 1 DAYS

REACTIONS (8)
  - Swelling [Unknown]
  - Blood pressure increased [Unknown]
  - Peripheral swelling [Unknown]
  - Mobility decreased [Unknown]
  - Pneumonia [Unknown]
  - Platelet count decreased [Unknown]
  - Joint swelling [Unknown]
  - Pain [Unknown]
